FAERS Safety Report 6663209-2 (Version None)
Quarter: 2010Q1

REPORT INFORMATION
  Report Type: 
  Country: None (occurrence: None)
  Receive Date: 20100330
  Receipt Date: 20100330
  Transmission Date: 20100710
  Serious: Yes (Life-Threatening, Hospitalization)
  Sender: FDA-Public Use
  Company Number: None

PATIENT
  Age: 65 Year
  Sex: Female
  Weight: 70.7611 kg

DRUGS (2)
  1. ZOLPIDEM [Suspect]
     Indication: DEATH OF RELATIVE
     Dosage: 10 MG ONCE AT NITE PO
     Route: 048
     Dates: start: 20080402, end: 20091103
  2. ZOLPIDEM [Suspect]
     Indication: INSOMNIA
     Dosage: 10 MG ONCE AT NITE PO
     Route: 048
     Dates: start: 20080402, end: 20091103

REACTIONS (9)
  - FACIAL BONES FRACTURE [None]
  - FALL [None]
  - HAEMATEMESIS [None]
  - INCORRECT DOSE ADMINISTERED [None]
  - MEDICATION ERROR [None]
  - MEMORY IMPAIRMENT [None]
  - PATELLA FRACTURE [None]
  - SOMNAMBULISM [None]
  - WRIST FRACTURE [None]
